FAERS Safety Report 5047662-6 (Version None)
Quarter: 2006Q3

REPORT INFORMATION
  Report Type: 
  Country: None (occurrence: None)
  Receive Date: 20060706
  Receipt Date: 20060706
  Transmission Date: 20061208
  Serious: Yes (Hospitalization)
  Sender: FDA-Public Use
  Company Number: None

PATIENT
  Age: 67 Year
  Sex: Male
  Weight: 76 kg

DRUGS (3)
  1. SOTALOL HCL [Suspect]
     Indication: ATRIAL FIBRILLATION
     Dosage: 80 MG Q12 H PO
     Route: 048
     Dates: start: 20060523, end: 20060525
  2. SOTALOL HCL [Suspect]
     Indication: ATRIAL FIBRILLATION
     Dosage: 80 MG Q12 H PO
     Route: 048
     Dates: start: 20060526, end: 20060528
  3. SOTALOL HCL [Suspect]
     Dosage: 40 MG Q 12 H PO
     Route: 048
     Dates: start: 20060525, end: 20060526

REACTIONS (11)
  - ATRIAL FIBRILLATION [None]
  - BLOOD PRESSURE DECREASED [None]
  - BLOOD PRESSURE SYSTOLIC INCREASED [None]
  - CARDIAC ARREST [None]
  - CONFUSIONAL STATE [None]
  - ELECTROCARDIOGRAM QT PROLONGED [None]
  - FALL [None]
  - HEAD INJURY [None]
  - REFUSAL OF TREATMENT BY PATIENT [None]
  - SINUS BRADYCARDIA [None]
  - SYNCOPE [None]
